FAERS Safety Report 4784950-2 (Version None)
Quarter: 2005Q3

REPORT INFORMATION
  Report Type: 
  Country: None (occurrence: None)
  Receive Date: 20050928
  Receipt Date: 20050908
  Transmission Date: 20060218
  Serious: Yes (Other)
  Sender: FDA-Public Use
  Company Number: USA0507103754

PATIENT
  Age: 16 Year
  Sex: Female

DRUGS (1)
  1. STRATTERA [Suspect]
     Dosage: 18 MG
     Dates: start: 20030728, end: 20050624

REACTIONS (1)
  - POLYMYOSITIS [None]
